FAERS Safety Report 4364772-7 (Version None)
Quarter: 2004Q2

REPORT INFORMATION
  Report Type: 
  Country: None (occurrence: None)
  Receive Date: 20040521
  Receipt Date: 20040505
  Transmission Date: 20050107
  Serious: Yes (Hospitalization)
  Sender: FDA-Public Use
  Company Number: USA040566844

PATIENT
  Age: 29 Year
  Sex: Male

DRUGS (2)
  1. ZYPREXA [Suspect]
     Indication: BIPOLAR DISORDER
     Dates: start: 20030201
  2. ZOLOFT [Concomitant]

REACTIONS (1)
  - MANIA [None]
